FAERS Safety Report 26010047 (Version 2)
Quarter: 2025Q4

REPORT INFORMATION
  Report Type: Spontaneous
  Country: US (occurrence: US)
  Receive Date: 20251107
  Receipt Date: 20251110
  Transmission Date: 20260118
  Serious: Yes (Death, Hospitalization, Other)
  Sender: AMNEAL
  Company Number: US-AMNEAL-2025-AMRX-04240

PATIENT
  Age: 26 Year
  Sex: Male

DRUGS (4)
  1. BACLOFEN [Suspect]
     Active Substance: BACLOFEN
     Indication: Cerebral palsy
     Dosage: 1,977.7 MCG/DAY
     Route: 037
  2. BACLOFEN [Suspect]
     Active Substance: BACLOFEN
     Indication: Muscle spasticity
  3. BACLOFEN [Suspect]
     Active Substance: BACLOFEN
     Indication: Cerebral palsy
     Dosage: UNK
     Route: 037
  4. BACLOFEN [Suspect]
     Active Substance: BACLOFEN
     Indication: Muscle spasticity

REACTIONS (7)
  - Pneumonia [Fatal]
  - Intestinal obstruction [Fatal]
  - Aspiration [Not Recovered/Not Resolved]
  - Vomiting [Fatal]
  - Post procedural infection [Fatal]
  - Device related infection [Fatal]
  - Seroma [Unknown]

NARRATIVE: CASE EVENT DATE: 20251025
